FAERS Safety Report 24918081 (Version 1)
Quarter: 2025Q1

REPORT INFORMATION
  Report Type: Spontaneous
  Country: CN (occurrence: CN)
  Receive Date: 20250203
  Receipt Date: 20250203
  Transmission Date: 20250409
  Serious: Yes (Hospitalization)
  Sender: PFIZER
  Company Number: CN-PFIZER INC-PV202500012195

PATIENT
  Age: 10 Year
  Sex: Female
  Weight: 32.5 kg

DRUGS (5)
  1. METHOTREXATE SODIUM [Suspect]
     Active Substance: METHOTREXATE SODIUM
     Indication: Chemotherapy
     Dosage: 300.000 MG, 1X/DAY
     Route: 041
     Dates: start: 20250121, end: 20250121
  2. METHOTREXATE SODIUM [Suspect]
     Active Substance: METHOTREXATE SODIUM
     Indication: Neoplasm malignant
     Dosage: 3000.000 MG, 1X/DAY
     Route: 041
     Dates: start: 20250121, end: 20250121
  3. METHOTREXATE SODIUM [Suspect]
     Active Substance: METHOTREXATE SODIUM
     Indication: Acute lymphocytic leukaemia
  4. DEXTROSE [Concomitant]
     Active Substance: DEXTROSE MONOHYDRATE
     Indication: Chemotherapy
     Dosage: 50.00000 ML, 1X/DAY
     Route: 041
     Dates: start: 20250121, end: 20250121
  5. DEXTROSE [Concomitant]
     Active Substance: DEXTROSE MONOHYDRATE
     Indication: Neoplasm malignant
     Dosage: 250.000 ML, 1X/DAY
     Route: 041
     Dates: start: 20250121, end: 20250121

REACTIONS (3)
  - Paronychia [Recovering/Resolving]
  - Hypoalbuminaemia [Recovering/Resolving]
  - Flushing [Recovering/Resolving]

NARRATIVE: CASE EVENT DATE: 20250122
